FAERS Safety Report 9420786 (Version 1)
Quarter: 2013Q3

REPORT INFORMATION
  Report Type: Spontaneous
  Country: US (occurrence: US)
  Receive Date: 20130725
  Receipt Date: 20130725
  Transmission Date: 20140515
  Serious: No
  Sender: FDA-Public Use
  Company Number: US-ABBOTT-13P-163-1050552-00

PATIENT
  Age: 69 Year
  Sex: Female
  Weight: 58.11 kg

DRUGS (3)
  1. SYNTHROID [Suspect]
     Indication: HYPOTHYROIDISM
     Dosage: ONE AND A HALF TABLET PER DAY TO EQUAL 37 MCG.
     Route: 048
     Dates: start: 2006
  2. SYNTHROID [Suspect]
     Dates: start: 1999, end: 2006
  3. VITAMINS [Concomitant]
     Indication: PRODUCT USED FOR UNKNOWN INDICATION

REACTIONS (1)
  - Nausea [Not Recovered/Not Resolved]
